FAERS Safety Report 6419684-1 (Version None)
Quarter: 2009Q4

REPORT INFORMATION
  Report Type: 
  Country: None (occurrence: None)
  Receive Date: 20091029
  Receipt Date: 20091026
  Transmission Date: 20100525
  Serious: Yes (Life-Threatening)
  Sender: FDA-Public Use
  Company Number: B0581303A

PATIENT
  Age: 31 Year
  Sex: Female
  Weight: 58 kg

DRUGS (4)
  1. COMBIVIR [Suspect]
     Indication: PROPHYLAXIS AGAINST HIV INFECTION
     Route: 048
     Dates: start: 20080416
  2. EFAVIRENZ [Suspect]
     Indication: PROPHYLAXIS AGAINST HIV INFECTION
     Dosage: 600MG PER DAY
     Route: 048
     Dates: start: 20080416, end: 20090616
  3. MEDROXYPROGESTERONE [Concomitant]
     Dosage: 150MG PER DAY
     Dates: start: 20080416
  4. ATAZANAVIR [Concomitant]
     Indication: PROPHYLAXIS AGAINST HIV INFECTION

REACTIONS (9)
  - DECREASED APPETITE [None]
  - DEPRESSED MOOD [None]
  - DEPRESSION [None]
  - FATIGUE [None]
  - HOMICIDAL IDEATION [None]
  - LOSS OF LIBIDO [None]
  - SUICIDAL IDEATION [None]
  - TERMINAL INSOMNIA [None]
  - VIOLENCE-RELATED SYMPTOM [None]
